FAERS Safety Report 4614025-4 (Version None)
Quarter: 2005Q1

REPORT INFORMATION
  Report Type: 
  Country: None (occurrence: None)
  Receive Date: 20050316
  Receipt Date: 20050301
  Transmission Date: 20050727
  Serious: Yes (Life-Threatening, Hospitalization)
  Sender: FDA-Public Use
  Company Number: EWC050242897

PATIENT
  Sex: Female

DRUGS (2)
  1. PROZAC [Suspect]
     Dosage: 20 MG/2 DAY
     Dates: start: 20040101, end: 20040101
  2. TRANKIMAZIN (ALPRAZOLAM DUM) [Concomitant]

REACTIONS (1)
  - GASTROINTESTINAL MALFORMATION [None]
